FAERS Safety Report 4576051-3 (Version None)
Quarter: 2005Q1

REPORT INFORMATION
  Report Type: 
  Country: None (occurrence: None)
  Receive Date: 20050204
  Receipt Date: 20050119
  Transmission Date: 20050727
  Serious: Yes (Other)
  Sender: FDA-Public Use
  Company Number: CA-2004-035677

PATIENT
  Age: 57 Year
  Sex: Female
  Weight: 60.8 kg

DRUGS (4)
  1. BETASERON [Suspect]
     Indication: RELAPSING-REMITTING MULTIPLE SCLEROSIS
     Dosage: 8 MIU, EVERY 2D, SUBCUTANEOUS
     Route: 058
     Dates: start: 19970402, end: 20041129
  2. BETASERON [Suspect]
     Indication: RELAPSING-REMITTING MULTIPLE SCLEROSIS
     Dosage: 8 MIU, EVERY 2D, SUBCUTANEOUS
     Route: 058
     Dates: start: 20041201
  3. TEGRETOL [Suspect]
     Indication: ABDOMINAL RIGIDITY
     Dates: start: 20020101, end: 20041206
  4. VITAMINS [Suspect]
     Dates: end: 20040101

REACTIONS (3)
  - ABDOMINAL PAIN [None]
  - ABDOMINAL RIGIDITY [None]
  - BLOOD POTASSIUM INCREASED [None]
